FAERS Safety Report 4612496-0 (Version None)
Quarter: 2005Q1

REPORT INFORMATION
  Report Type: 
  Country: None (occurrence: None)
  Receive Date: 20050318
  Receipt Date: 20050307
  Transmission Date: 20050727
  Serious: Yes (Other)
  Sender: FDA-Public Use
  Company Number: ES-ABBOTT-05P-144-0293118-00

PATIENT
  Age: 57 Year
  Sex: Male

DRUGS (4)
  1. NORVIR [Suspect]
     Indication: HIV INFECTION
     Route: 048
     Dates: start: 20020401, end: 20041101
  2. INDINAVIR SULFATE [Interacting]
     Indication: HIV INFECTION
     Route: 048
     Dates: start: 20020401, end: 20041101
  3. LAMIVUDINE AND ZIDOVUDINE [Concomitant]
     Indication: HIV INFECTION
     Route: 048
     Dates: start: 20020401
  4. NEVIRAPINE [Concomitant]
     Indication: HIV INFECTION
     Route: 048
     Dates: start: 20041101

REACTIONS (2)
  - DRUG INTERACTION [None]
  - NEPHROLITHIASIS [None]
